FAERS Safety Report 9413549 (Version 1)
Quarter: 2013Q1

REPORT INFORMATION
  Report Type: Spontaneous
  Country: US (occurrence: None)
  Receive Date: 20120131
  Receipt Date: 20120131
  Transmission Date: 20140127
  Serious: Yes (Death)
  Sender: FDA-Public Use
  Company Number: 2012SP004393

PATIENT
  Sex: 0

DRUGS (1)
  1. TEMOZOLOMIDE [Suspect]
     Indication: GLIOBLASTOMA

REACTIONS (2)
  - Sepsis [None]
  - Toxicity to various agents [None]
